FAERS Safety Report 7129685-6 (Version None)
Quarter: 2010Q4

REPORT INFORMATION
  Report Type: 
  Country: None (occurrence: None)
  Receive Date: 20101130
  Receipt Date: 20101125
  Transmission Date: 20110411
  Serious: Yes (Other)
  Sender: FDA-Public Use
  Company Number: CN-PFIZER INC-2010157481

PATIENT
  Age: 65 Year

DRUGS (1)
  1. ZYVOX [Suspect]

REACTIONS (1)
  - INTESTINAL HAEMORRHAGE [None]
